FAERS Safety Report 5919122-9 (Version None)
Quarter: 2008Q3

REPORT INFORMATION
  Report Type: 
  Country: None (occurrence: None)
  Receive Date: 20080909
  Receipt Date: 20080215
  Transmission Date: 20090109
  Serious: Yes (Other)
  Sender: FDA-Public Use
  Company Number: 163-20785-07010906 (0)

PATIENT
  Age: 65 Year
  Sex: Male
  Weight: 82.5547 kg

DRUGS (20)
  1. THALOMID [Suspect]
     Indication: MULTIPLE MYELOMA
     Dosage: 50 MG, 1 IN 1 D, ORAL ; 200 MG, DAILY, ORAL ; 100 - 200 MG, DAILY,ORAL
     Route: 048
     Dates: start: 20060627, end: 20060901
  2. THALOMID [Suspect]
     Indication: MULTIPLE MYELOMA
     Dosage: 50 MG, 1 IN 1 D, ORAL ; 200 MG, DAILY, ORAL ; 100 - 200 MG, DAILY,ORAL
     Route: 048
     Dates: start: 20061116, end: 20070101
  3. THALOMID [Suspect]
     Indication: MULTIPLE MYELOMA
     Dosage: 50 MG, 1 IN 1 D, ORAL ; 200 MG, DAILY, ORAL ; 100 - 200 MG, DAILY,ORAL
     Route: 048
     Dates: start: 20070131, end: 20070801
  4. DEXAMETHASONE [Suspect]
     Indication: MULTIPLE MYELOMA
     Dosage: 10 PILLS, X 4 DAYS MONTHLY, ORAL
     Route: 048
     Dates: start: 20061101, end: 20070801
  5. DEXAMETHASONE [Suspect]
     Dosage: PULSE THERAPY, INTRAVENOUS
     Route: 042
     Dates: start: 20070801
  6. DOXIL [Concomitant]
     Indication: MULTIPLE MYELOMA
  7. AREDIA [Suspect]
     Indication: DRUG USE FOR UNKNOWN INDICATION
  8. COUMADIN [Concomitant]
  9. XOPENEX (LEVOSALBUTAMOL) (SOLUTION) [Concomitant]
  10. ACYCLOVIR (ACICLOVIR) (200 MILLIGRAM, CAPSULES) [Concomitant]
  11. NEXIUM [Concomitant]
  12. AMOXICILLIN (AMOXICILLIN) (CAPSULES) [Concomitant]
  13. BACTRIM DS [Concomitant]
  14. GLIPIZIDE [Concomitant]
  15. BENICAR HCT (BENICAR HCT) (TABLETS) [Concomitant]
  16. ASA (ACETYLSALICYLIC ACID) (TABLETS) [Concomitant]
  17. ATENOLOL [Concomitant]
  18. MULTIVITAMINS (MULTIVITAMINS) (TABLETS) [Concomitant]
  19. LEVAQUIN [Concomitant]
  20. LOVENOX [Concomitant]

REACTIONS (6)
  - DEEP VEIN THROMBOSIS [None]
  - DYSPNOEA [None]
  - HYPOXIA [None]
  - MONOCLONAL IMMUNOGLOBULIN PRESENT [None]
  - PARAESTHESIA [None]
  - PNEUMONITIS [None]
